FAERS Safety Report 13347683 (Version 8)
Quarter: 2018Q2

REPORT INFORMATION
  Report Type: Report from Study
  Country: US (occurrence: US)
  Receive Date: 20170317
  Receipt Date: 20180622
  Transmission Date: 20180711
  Serious: Yes (Hospitalization, Other)
  Sender: FDA-Public Use
  Company Number: US-ACTELION-A-US2017-149678

PATIENT
  Age: 52 Year
  Sex: Female
  Weight: 87.98 kg

DRUGS (12)
  1. ASPIRIN. [Concomitant]
     Active Substance: ASPIRIN
  2. DIGOXIN. [Concomitant]
     Active Substance: DIGOXIN
  3. WARFARIN SODIUM. [Concomitant]
     Active Substance: WARFARIN SODIUM
  4. OXYGEN. [Concomitant]
     Active Substance: OXYGEN
     Dosage: 3 L, UNK
     Dates: start: 20171213
  5. OPSUMIT [Suspect]
     Active Substance: MACITENTAN
     Indication: PULMONARY HYPERTENSION
     Dosage: 10 MG, QD
     Route: 048
     Dates: start: 20150314
  6. REMODULIN [Concomitant]
     Active Substance: TREPROSTINIL
  7. METOPROLOL SUCCINATE. [Concomitant]
     Active Substance: METOPROLOL SUCCINATE
  8. METFORMIN [Concomitant]
     Active Substance: METFORMIN HYDROCHLORIDE
  9. ADEMPAS [Concomitant]
     Active Substance: RIOCIGUAT
  10. PROSTACYCLIN [Concomitant]
     Active Substance: EPOPROSTENOL
  11. ATORVASTATIN [Concomitant]
     Active Substance: ATORVASTATIN
  12. LASIX [Concomitant]
     Active Substance: FUROSEMIDE

REACTIONS (27)
  - Pulmonary arterial pressure increased [Recovered/Resolved]
  - Dizziness [Unknown]
  - Heart rate irregular [Unknown]
  - Oxygen saturation decreased [Unknown]
  - Device alarm issue [Unknown]
  - Infusion site erythema [Unknown]
  - Neuropathy peripheral [Unknown]
  - Hypoxia [Not Recovered/Not Resolved]
  - Catheter site erythema [Unknown]
  - Dyspnoea [Recovered/Resolved]
  - Diabetes mellitus [Unknown]
  - Dizziness postural [Unknown]
  - Catheter site swelling [Unknown]
  - Palpitations [Recovered/Resolved]
  - Catheter site haemorrhage [Recovered/Resolved]
  - Vision blurred [Unknown]
  - Right ventricular failure [Recovered/Resolved]
  - Chest pain [Unknown]
  - Catheter site pain [Unknown]
  - Arrhythmia [Unknown]
  - Dyspnoea exertional [Recovered/Resolved]
  - Hypotension [Unknown]
  - Cardiac flutter [Unknown]
  - Pain in extremity [Unknown]
  - Diarrhoea [Unknown]
  - Headache [Not Recovered/Not Resolved]
  - Blood pressure systolic increased [Unknown]

NARRATIVE: CASE EVENT DATE: 20150513
